FAERS Safety Report 7352224 (Version 5)
Quarter: 2013Q4

REPORT INFORMATION
  Report Type: Spontaneous
  Country: US (occurrence: US)
  Receive Date: 20100412
  Receipt Date: 20131126
  Transmission Date: 20140711
  Serious: Yes (Hospitalization, Other)
  Sender: FDA-Public Use
  Company Number: US-ALEXION-A201000170

PATIENT
  Age: 35 Year
  Sex: Female

DRUGS (8)
  1. SOLIRIS 300MG [Suspect]
     Indication: PAROXYSMAL NOCTURNAL HAEMOGLOBINURIA
     Dosage: 600 MG, QW
     Route: 042
     Dates: start: 20100201, end: 20100222
  2. SOLIRIS 300MG [Suspect]
     Dosage: 900 MG, UNK
     Route: 042
     Dates: start: 20100301, end: 201005
  3. SOLIRIS 300MG [Suspect]
     Dosage: UNK
     Route: 042
     Dates: start: 2010
  4. KCL [Concomitant]
     Dosage: 20 MEQ, QID
     Route: 048
  5. FOLIC ACID [Concomitant]
     Dosage: 1 MG, QD
     Route: 048
  6. PROCARDIA XL [Concomitant]
     Dosage: 90 MG, QD
     Route: 048
  7. PREDNISONE [Concomitant]
     Dosage: 30 MG, QD
     Route: 048
  8. VITAMIN C                          /00008001/ [Concomitant]
     Dosage: UNK
     Route: 048

REACTIONS (8)
  - Platelet count decreased [Recovering/Resolving]
  - Red blood cell count decreased [Unknown]
  - Haemoglobin decreased [Recovering/Resolving]
  - Haematocrit decreased [Recovering/Resolving]
  - Vaginal haemorrhage [Recovered/Resolved]
  - Epistaxis [Unknown]
  - Headache [Not Recovered/Not Resolved]
  - Pyrexia [Unknown]
